FAERS Safety Report 4479841-0 (Version None)
Quarter: 2004Q3

REPORT INFORMATION
  Report Type: 
  Country: None (occurrence: None)
  Receive Date: 20040923
  Receipt Date: 20040714
  Transmission Date: 20050211
  Serious: No
  Sender: FDA-Public Use
  Company Number: USA040464583

PATIENT
  Age: 75 Year
  Sex: Female
  Weight: 50 kg

DRUGS (4)
  1. FORTEO [Suspect]
     Indication: OSTEOPOROSIS
     Dates: start: 20030601
  2. INDERAL [Concomitant]
  3. PREVACID [Concomitant]
  4. CLARINEX [Concomitant]

REACTIONS (4)
  - ARTHRALGIA [None]
  - GROIN PAIN [None]
  - LUMBAR VERTEBRA INJURY [None]
  - WEIGHT INCREASED [None]
